FAERS Safety Report 16186747 (Version 1)
Quarter: 2019Q2

REPORT INFORMATION
  Report Type: Spontaneous
  Country: JP (occurrence: JP)
  Receive Date: 20190411
  Receipt Date: 20190411
  Transmission Date: 20190711
  Serious: Yes (Hospitalization)
  Sender: FDA-Public Use
  Company Number: JP-CELGENEUS-JPN-20181206920

PATIENT
  Age: 82 Year
  Sex: Female
  Weight: 40 kg

DRUGS (6)
  1. GEMCITABINE [Suspect]
     Active Substance: GEMCITABINE\GEMCITABINE HYDROCHLORIDE
     Indication: PANCREATIC CARCINOMA RECURRENT
     Dosage: 1370 MILLIGRAM
     Route: 041
     Dates: start: 20180711, end: 20180822
  2. ABRAXANE [Suspect]
     Active Substance: PACLITAXEL
     Indication: PANCREATIC CARCINOMA RECURRENT
     Dosage: 125 MILLIGRAM/SQ. METER
     Route: 041
  3. PREDNISOLONE. [Concomitant]
     Active Substance: PREDNISOLONE
     Indication: PRODUCT USED FOR UNKNOWN INDICATION
     Dosage: 40 MILLIGRAM
     Route: 065
     Dates: start: 20181117, end: 20181121
  4. PREDNISOLONE. [Concomitant]
     Active Substance: PREDNISOLONE
     Dosage: 80 MILLIGRAM
     Route: 065
     Dates: start: 20181122
  5. GEMCITABINE [Suspect]
     Active Substance: GEMCITABINE\GEMCITABINE HYDROCHLORIDE
     Indication: PANCREATIC CARCINOMA RECURRENT
     Dosage: 1250 MILLIGRAM
     Route: 041
     Dates: start: 20180905, end: 20181031
  6. ABRAXANE [Suspect]
     Active Substance: PACLITAXEL
     Indication: PANCREATIC CARCINOMA RECURRENT
     Dosage: 160 MILLIGRAM
     Route: 041
     Dates: start: 20180905, end: 20181031

REACTIONS (3)
  - Interstitial lung disease [Recovering/Resolving]
  - Renal impairment [Unknown]
  - Neutrophil count decreased [Unknown]

NARRATIVE: CASE EVENT DATE: 20181112
